FAERS Safety Report 6617577-8 (Version None)
Quarter: 2010Q1

REPORT INFORMATION
  Report Type: 
  Country: None (occurrence: None)
  Receive Date: 20100308
  Receipt Date: 20090305
  Transmission Date: 20100710
  Serious: No
  Sender: FDA-Public Use
  Company Number: US-TYCO HEALTHCARE/MALLINCKRODT-T200900615

PATIENT
  Sex: Male
  Weight: 113 kg

DRUGS (4)
  1. ACETAMINOPHEN AND HYDROCODONE BITARTRATE [Suspect]
     Indication: ARTHRALGIA
     Dosage: 10/500 MG, ONE TAB 3-4X DAY
     Route: 048
     Dates: start: 20090220, end: 20090224
  2. ACETAMINOPHEN AND HYDROCODONE BITARTRATE [Suspect]
     Dosage: 7.5/500 MG, ONE TAB 3-4X DAILY
     Route: 048
     Dates: start: 20090225, end: 20090227
  3. EFFEXOR [Concomitant]
     Indication: NERVOUS SYSTEM DISORDER
     Dosage: UNK
     Route: 048
  4. ACETAMINOPHEN AND HYDROCODONE BITARTRATE [Concomitant]
     Indication: ARTHRALGIA
     Dosage: 7.5/500 MG, 1 TAB 3-4X DAY
     Route: 048
     Dates: start: 20060101, end: 20090220

REACTIONS (9)
  - CHEST PAIN [None]
  - DIARRHOEA [None]
  - DRUG DIVERSION [None]
  - DRUG INEFFECTIVE [None]
  - DYSGEUSIA [None]
  - HEADACHE [None]
  - NAUSEA [None]
  - URINE ABNORMALITY [None]
  - VISION BLURRED [None]
